FAERS Safety Report 18951488 (Version 2)
Quarter: 2021Q1

REPORT INFORMATION
  Report Type: Spontaneous
  Country: DE (occurrence: DE)
  Receive Date: 20210301
  Receipt Date: 20210315
  Transmission Date: 20210420
  Serious: Yes (Hospitalization)
  Sender: FDA-Public Use
  Company Number: DE-LUPIN PHARMACEUTICALS INC.-2021-02374

PATIENT
  Age: 80 Year
  Sex: Male

DRUGS (13)
  1. DECORTIN H [Suspect]
     Active Substance: PREDNISOLONE
     Dosage: 200 MILLIGRAM, QD (ON DAY 5 AND 6 OF THE INPATIENT STAY)
     Route: 048
  2. DECORTIN H [Suspect]
     Active Substance: PREDNISOLONE
     Dosage: 110 MILLIGRAM, QD (ON DAY 23 OF THE INPATIENT STAY)
     Route: 048
  3. DECORTIN H [Suspect]
     Active Substance: PREDNISOLONE
     Dosage: 300 MILLIGRAM, QD (ON DAY 7 OF THE INPATIENT STAY)
     Route: 048
  4. DECORTIN H [Suspect]
     Active Substance: PREDNISOLONE
     Indication: URTICARIA
     Dosage: 150 MILLIGRAM, QD (ON DAY 2 AND 3 OF THE INPATIENT STAY)
     Route: 048
  5. DECORTIN H [Suspect]
     Active Substance: PREDNISOLONE
     Dosage: 40 MILLIGRAM, QD (ON DAY 29 OF THE INPATIENT STAY)
     Route: 048
  6. CALCIUM [Concomitant]
     Active Substance: CALCIUM
     Indication: PRODUCT USED FOR UNKNOWN INDICATION
     Dosage: UNK
     Route: 065
  7. DESLORATADINE. [Suspect]
     Active Substance: DESLORATADINE
     Indication: URTICARIA
     Dosage: UNK UNK, BID (TWICE THE RECOMMENDED DAILY DOSE)
     Route: 065
  8. DECORTIN H [Suspect]
     Active Substance: PREDNISOLONE
     Dosage: 200 MILLIGRAM, QD (BY DAY 16 OF THE INPATIENT STAY, THE DOSAGE WAS GRADUALLY REDUCED TO 200MG DAILY)
     Route: 048
  9. DECORTIN H [Suspect]
     Active Substance: PREDNISOLONE
     Dosage: 170 MILLIGRAM, QD (ON DAY 17 OF THE INPATIENT STAY)
     Route: 048
  10. KETOTIFEN [Suspect]
     Active Substance: KETOTIFEN
     Indication: URTICARIA
     Dosage: UNK (RECEIVED HIGH DOSE)
     Route: 065
  11. DECORTIN H [Suspect]
     Active Substance: PREDNISOLONE
     Dosage: 350 MILLIGRAM, QD (ON DAY 4 OF THE INPATIENT STAY)
     Route: 048
  12. DECORTIN H [Suspect]
     Active Substance: PREDNISOLONE
     Dosage: 400 MILLIGRAM, QD (FROM DAY 8 TO 11)
     Route: 048
  13. CLEMASTINE [Suspect]
     Active Substance: CLEMASTINE
     Indication: URTICARIA
     Dosage: UNK (RECEIVED HIGH DOSE)
     Route: 065

REACTIONS (1)
  - Off label use [Unknown]
